FAERS Safety Report 5790063-3 (Version None)
Quarter: 2008Q2

REPORT INFORMATION
  Report Type: 
  Country: None (occurrence: None)
  Receive Date: 20080618
  Receipt Date: 20080205
  Transmission Date: 20081010
  Serious: Yes (Other)
  Sender: FDA-Public Use
  Company Number: 200810713US

PATIENT
  Age: 75 Year
  Sex: Male

DRUGS (3)
  1. LANTUS [Suspect]
     Dosage: INJ
  2. LANTUS [Suspect]
     Dosage: 500-600 U ONCE IV
     Route: 042
     Dates: start: 20080131, end: 20080131
  3. PANTOPRAZOLE SODIUM [Suspect]
     Dosage: IV
     Route: 042

REACTIONS (3)
  - ACCIDENTAL OVERDOSE [None]
  - HYPOGLYCAEMIA [None]
  - WRONG DRUG ADMINISTERED [None]
